FAERS Safety Report 9642922 (Version 3)
Quarter: 2013Q4

REPORT INFORMATION
  Report Type: Report from Study
  Country: NL (occurrence: NL)
  Receive Date: 20131024
  Receipt Date: 20131125
  Transmission Date: 20140711
  Serious: Yes (Death, Hospitalization)
  Sender: FDA-Public Use
  Company Number: PHHY2013NL119647

PATIENT
  Age: 73 Year
  Sex: Male

DRUGS (5)
  1. ZOMETA [Suspect]
     Indication: METASTASES TO BONE
     Dosage: 4 MG/100 ML, ONCE PER 6 WEEKS
     Route: 042
     Dates: start: 201307
  2. ZOMETA [Suspect]
     Dosage: 4 MG/100 ML, ONCE PER 6 WEEKS
     Route: 042
     Dates: start: 20130730
  3. ZOMETA [Suspect]
     Dosage: 4 MG/100 ML, ONCE PER 6 WEEKS
     Route: 042
     Dates: start: 20130910
  4. ANTIHYPERTENSIVES [Concomitant]
     Dosage: UNK UKN, UNK
  5. ANTIARRHYTHMIC AGENTS [Concomitant]
     Dosage: UNK UKN, UNK

REACTIONS (5)
  - Myocardial infarction [Fatal]
  - Arrhythmia [Fatal]
  - Cardiac failure [Fatal]
  - Chest discomfort [Unknown]
  - Dyspnoea [Unknown]
